FAERS Safety Report 7773190-0 (Version None)
Quarter: 2011Q3

REPORT INFORMATION
  Report Type: 
  Country: None (occurrence: None)
  Receive Date: 20110922
  Receipt Date: 20110915
  Transmission Date: 20111222
  Serious: Yes (Other)
  Sender: FDA-Public Use
  Company Number: US-NOVOPROD-333760

PATIENT

DRUGS (2)
  1. ZOCOR [Concomitant]
  2. LIRAGLUTIDE FLEXPEN [Suspect]
     Indication: OBESITY
     Dosage: 1.8 MG, QD
     Route: 058
     Dates: start: 20110722, end: 20110805

REACTIONS (1)
  - PANCREATITIS [None]
